FAERS Safety Report 21063662 (Version 1)
Quarter: 2022Q3

REPORT INFORMATION
  Report Type: Spontaneous
  Country: BE (occurrence: BE)
  Receive Date: 20220711
  Receipt Date: 20220711
  Transmission Date: 20221026
  Serious: Yes (Hospitalization, Other)
  Sender: FDA-Public Use
  Company Number: BE-TEVA-2020-BE-1239628

PATIENT
  Age: 40 Year
  Sex: Male

DRUGS (5)
  1. IRINOTECAN [Suspect]
     Active Substance: IRINOTECAN
     Indication: Colon cancer
     Dosage: UNK PART OF FOLFIRI REGIMEN, CYCLICAL
     Route: 065
  2. LEUCOVORIN [Suspect]
     Active Substance: LEUCOVORIN
     Indication: Colon cancer
     Dosage: UNK PART OF FOLFOX AND FOLFIRI REGIMEN, CYCLICAL
     Route: 065
  3. FLUOROURACIL [Suspect]
     Active Substance: FLUOROURACIL
     Indication: Colon cancer
     Dosage: UNK PART OF FOLFOX AND FOLFIRI REGIMEN, CYCLICAL
     Route: 065
  4. OXALIPLATIN [Suspect]
     Active Substance: OXALIPLATIN
     Indication: Colon cancer
     Dosage: UNK PART OF FOLFOX REGIMEN, CYCLICAL
     Route: 065
  5. PANITUMUMAB [Suspect]
     Active Substance: PANITUMUMAB
     Indication: Colon cancer
     Dosage: UNK UNK, CYCLICAL
     Route: 065

REACTIONS (6)
  - Blindness [Recovered/Resolved]
  - Neurosarcoidosis [Recovering/Resolving]
  - Myelitis transverse [Recovering/Resolving]
  - Encephalitis [Recovering/Resolving]
  - Pulmonary sarcoidosis [Recovering/Resolving]
  - Cardiomyopathy [Unknown]
